FAERS Safety Report 5857203-9 (Version None)
Quarter: 2008Q3

REPORT INFORMATION
  Report Type: 
  Country: None (occurrence: None)
  Receive Date: 20080821
  Receipt Date: 20080730
  Transmission Date: 20090109
  Serious: Yes (Other)
  Sender: FDA-Public Use
  Company Number: 20085477

PATIENT
  Age: 58 Year
  Sex: Female

DRUGS (1)
  1. LIORESAL [Suspect]
     Indication: MUSCLE SPASTICITY
     Dosage: 195 MCG, DAILY, INTRATHECAL
     Route: 037

REACTIONS (3)
  - CEREBROVASCULAR DISORDER [None]
  - DEVICE MIGRATION [None]
  - FALL [None]
